FAERS Safety Report 21829529 (Version 1)
Quarter: 2023Q1

REPORT INFORMATION
  Report Type: Spontaneous
  Country: TR (occurrence: TR)
  Receive Date: 20230106
  Receipt Date: 20230106
  Transmission Date: 20230418
  Serious: Yes (Other)
  Sender: FDA-Public Use
  Company Number: TR-CELLTRION INC.-2022TR022122

PATIENT

DRUGS (3)
  1. HERZUMA [Suspect]
     Active Substance: TRASTUZUMAB-PKRB
     Indication: Breast cancer
     Dosage: UNK
     Route: 042
     Dates: start: 20221219
  2. LETROZOLE [Concomitant]
     Active Substance: LETROZOLE
     Dosage: 1 DAY
     Route: 050
  3. PERTUZUMAB [Concomitant]
     Active Substance: PERTUZUMAB
     Dosage: 420 MILLIGRAM ONCE EVERY THREE WEEKS
     Route: 050

REACTIONS (1)
  - Dyskinesia [Not Recovered/Not Resolved]
